FAERS Safety Report 4344772-3 (Version None)
Quarter: 2004Q2

REPORT INFORMATION
  Report Type: 
  Country: None (occurrence: None)
  Receive Date: 20040423
  Receipt Date: 20031117
  Transmission Date: 20050107
  Serious: No
  Sender: FDA-Public Use
  Company Number: US-GLAXOSMITHKLINE-A0439972A

PATIENT
  Age: 73 Year
  Sex: Female
  Weight: 61.4 kg

DRUGS (1)
  1. LEUKERAN [Suspect]
     Indication: ILL-DEFINED DISORDER
     Dosage: 14MG PER DAY
     Route: 048
     Dates: start: 20031011, end: 20031015

REACTIONS (1)
  - ORAL MUCOSAL BLISTERING [None]
